FAERS Safety Report 21884252 (Version 1)
Quarter: 2023Q1

REPORT INFORMATION
  Report Type: Spontaneous
  Country: US (occurrence: US)
  Receive Date: 20230119
  Receipt Date: 20230119
  Transmission Date: 20230417
  Serious: Yes (Death, Hospitalization, Other)
  Sender: FDA-Public Use
  Company Number: US-drreddys-LIT/USA/23/0159988

PATIENT
  Age: 45 Year
  Sex: Female

DRUGS (2)
  1. TREPROSTINIL [Suspect]
     Active Substance: TREPROSTINIL
     Indication: Respiratory failure
     Route: 058
  2. EPOPROSTENOL [Suspect]
     Active Substance: EPOPROSTENOL
     Indication: Respiratory failure

REACTIONS (4)
  - Death [Fatal]
  - Respiratory failure [Unknown]
  - Right ventricular failure [Unknown]
  - Drug ineffective for unapproved indication [Unknown]
